FAERS Safety Report 8431219-0 (Version None)
Quarter: 2012Q2

REPORT INFORMATION
  Report Type: 
  Country: None (occurrence: None)
  Receive Date: 20120612
  Receipt Date: 20120610
  Transmission Date: 20120825
  Serious: Yes (Hospitalization, Other)
  Sender: FDA-Public Use
  Company Number: FR-AMGEN-FRASP2012035916

PATIENT
  Age: 64 Year
  Sex: Female
  Weight: 55 kg

DRUGS (3)
  1. NPLATE [Suspect]
     Indication: THROMBOCYTOPENIA
     Dosage: UNK
     Dates: start: 20120531
  2. PREDNISONE TAB [Concomitant]
     Dosage: 50 MG, UNK
     Dates: start: 20120101
  3. NILEVAR [Concomitant]
     Dosage: 10 MG, QD

REACTIONS (6)
  - PYREXIA [None]
  - MUSCULAR WEAKNESS [None]
  - CLONIC CONVULSION [None]
  - MOUTH HAEMORRHAGE [None]
  - CLONUS [None]
  - STUPOR [None]
